FAERS Safety Report 8591040-X (Version None)
Quarter: 2012Q3

REPORT INFORMATION
  Report Type: 
  Country: None (occurrence: None)
  Receive Date: 20120813
  Receipt Date: 20120809
  Transmission Date: 20120928
  Serious: Yes (Other)
  Sender: FDA-Public Use
  Company Number: JP-PFIZER INC-2012183250

PATIENT

DRUGS (3)
  1. LYRICA [Suspect]
     Dosage: UNK
     Route: 048
  2. ETODOLAC [Concomitant]
     Dosage: UNK
     Route: 048
  3. OXYCONTIN [Concomitant]
     Dosage: UNK
     Route: 048

REACTIONS (2)
  - CEREBRAL INFARCTION [None]
  - CEREBROVASCULAR ACCIDENT [None]
